FAERS Safety Report 12721099 (Version 4)
Quarter: 2017Q2

REPORT INFORMATION
  Report Type: Report from Study
  Country: US (occurrence: US)
  Receive Date: 20160907
  Receipt Date: 20170417
  Transmission Date: 20170830
  Serious: Yes (Death, Hospitalization)
  Sender: FDA-Public Use
  Company Number: US-ACTELION-A-US2016-141650

PATIENT
  Age: 64 Year
  Sex: Female

DRUGS (3)
  1. OPSUMIT [Suspect]
     Active Substance: MACITENTAN
     Indication: PULMONARY HYPERTENSION
     Dosage: 10 MG, QD
     Route: 048
     Dates: start: 20150424
  2. TREPROSTINIL DIOLAMIN [Concomitant]
     Active Substance: TREPROSTINIL DIOLAMINE
  3. COUMADIN [Concomitant]
     Active Substance: WARFARIN SODIUM

REACTIONS (12)
  - Urinary tract infection [Unknown]
  - Respiratory distress [Unknown]
  - Dyspnoea [Unknown]
  - Cardiac disorder [Unknown]
  - Prothrombin time prolonged [Unknown]
  - Chronic respiratory failure [Unknown]
  - Fall [Unknown]
  - Pulmonary oedema [Unknown]
  - Cardiac valve disease [Fatal]
  - International normalised ratio increased [Unknown]
  - Upper limb fracture [Unknown]
  - Cardiac failure congestive [Unknown]
